FAERS Safety Report 9296671 (Version 1)
Quarter: 2013Q2

REPORT INFORMATION
  Report Type: Report from Study
  Country: VE (occurrence: VE)
  Receive Date: 20130517
  Receipt Date: 20130517
  Transmission Date: 20140414
  Serious: Yes (Death, Hospitalization, Other)
  Sender: FDA-Public Use
  Company Number: PHHY2013VE048685

PATIENT
  Age: 64 Year
  Sex: Male

DRUGS (2)
  1. SANDOSTATIN LAR [Suspect]
     Indication: METASTASES TO LIVER
     Dosage: 30 MG, UNK
     Route: 030
     Dates: start: 20130508
  2. DIURETICS [Concomitant]

REACTIONS (6)
  - Metastases to liver [Fatal]
  - Malignant neoplasm progression [Fatal]
  - Oedema [Unknown]
  - Haematemesis [Unknown]
  - Hypotension [Unknown]
  - Dizziness [Unknown]
